FAERS Safety Report 5829525-9 (Version None)
Quarter: 2008Q3

REPORT INFORMATION
  Report Type: 
  Country: None (occurrence: None)
  Receive Date: 20080731
  Receipt Date: 20080721
  Transmission Date: 20090109
  Serious: Yes (Other)
  Sender: FDA-Public Use
  Company Number: SE-ABBOTT-08P-150-0450377-00

PATIENT
  Age: 50 Year
  Sex: Female

DRUGS (1)
  1. HUMIRA [Suspect]
     Indication: CROHN'S DISEASE
     Dates: start: 20071201, end: 20080301

REACTIONS (5)
  - APHASIA [None]
  - CEREBROVASCULAR ACCIDENT [None]
  - DRUG ERUPTION [None]
  - HEMIPARESIS [None]
  - THROMBOTIC THROMBOCYTOPENIC PURPURA [None]
